FAERS Safety Report 9867534 (Version 1)
Quarter: 2014Q1

REPORT INFORMATION
  Report Type: Spontaneous
  Country: US (occurrence: US)
  Receive Date: 20140204
  Receipt Date: 20140204
  Transmission Date: 20141002
  Serious: No
  Sender: FDA-Public Use
  Company Number: US-BAYER-2014-017812

PATIENT
  Age: 77 Year
  Sex: Female
  Weight: 68.03 kg

DRUGS (3)
  1. ALEVE TABLET [Suspect]
     Indication: ANALGESIC THERAPY
     Dosage: UNK DF, OTHER FREQUENCY
     Route: 048
     Dates: start: 2013
  2. ALEVE TABLET [Suspect]
     Indication: ANALGESIC THERAPY
     Dosage: 2 DF, UNK
     Dates: start: 2013
  3. ALEVE TABLET [Suspect]
     Indication: ANALGESIC THERAPY
     Dosage: 2 IN MORNING, 1 IN EVENING
     Dates: start: 2014

REACTIONS (2)
  - Constipation [Not Recovered/Not Resolved]
  - Incorrect drug administration duration [None]
